FAERS Safety Report 24214273 (Version 1)
Quarter: 2024Q3

REPORT INFORMATION
  Report Type: Report from Study
  Country: US (occurrence: None)
  Receive Date: 20240815
  Receipt Date: 20240815
  Transmission Date: 20241017
  Serious: Yes (Other)
  Sender: ASTRAZENECA
  Company Number: 2022A292430

PATIENT
  Sex: Male

DRUGS (1)
  1. CALQUENCE [Suspect]
     Active Substance: ACALABRUTINIB
     Indication: Chronic lymphocytic leukaemia
     Route: 048
     Dates: start: 20220727

REACTIONS (5)
  - Renal failure [Unknown]
  - Decreased appetite [Unknown]
  - Faeces discoloured [Unknown]
  - Contusion [Unknown]
  - Asthenia [Unknown]
